FAERS Safety Report 24744982 (Version 2)
Quarter: 2025Q2

REPORT INFORMATION
  Report Type: Spontaneous
  Country: US (occurrence: US)
  Receive Date: 20241217
  Receipt Date: 20250422
  Transmission Date: 20250717
  Serious: No
  Sender: PFIZER
  Company Number: US-PFIZER INC-202400322488

PATIENT
  Age: 40 Year
  Sex: Male
  Weight: 61.23 kg

DRUGS (4)
  1. LORBRENA [Suspect]
     Active Substance: LORLATINIB
     Indication: Non-small cell lung cancer
     Dosage: 100 MG, 1X/DAY
     Dates: start: 202411
  2. DECADRON [Suspect]
     Active Substance: DEXAMETHASONE
     Indication: Inflammation
  3. DECADRON [Suspect]
     Active Substance: DEXAMETHASONE
     Dosage: 2 MG, 1X/DAY
  4. KEPPRA [Concomitant]
     Active Substance: LEVETIRACETAM
     Dosage: UNK UNK, 2X/DAY

REACTIONS (5)
  - Feeling abnormal [Unknown]
  - Musculoskeletal disorder [Unknown]
  - Malaise [Unknown]
  - Disturbance in attention [Unknown]
  - Fatigue [Unknown]

NARRATIVE: CASE EVENT DATE: 20241201
